FAERS Safety Report 8077059-6 (Version None)
Quarter: 2011Q4

REPORT INFORMATION
  Report Type: 
  Country: None (occurrence: None)
  Receive Date: 20111221
  Receipt Date: 20111020
  Transmission Date: 20120403
  Serious: Yes (Hospitalization)
  Sender: FDA-Public Use
  Company Number: PHHY2011US62315

PATIENT
  Age: 82 Year
  Sex: Male
  Weight: 87.7 kg

DRUGS (19)
  1. ADVAIR DISKUS (FLUTICASONE PROPIONATE, SALMETEROL XINAFOATE) [Concomitant]
  2. PROSCAR (FINASTERIDE) 02/19/2011 TO UNK [Concomitant]
  3. ZOLOFT [Concomitant]
  4. CITRACAL (CALCIUM CITRATE) 02/19/2011 TO UNK [Concomitant]
  5. LEVAQUIN (LEVOFLOXACIN) 09/01/2011 TO UNK [Concomitant]
  6. TOPROL XL (METOPROLOL SUCCINATE) 02/19/2011 TO UNK [Concomitant]
  7. FOLIC ACID (FOLIC ACID) 02/19/2011 TO UNK [Concomitant]
  8. MEN (MENINGOCOCCAL POLYSACCHARIDE) TABLET 02/19/2011 TO UNK [Concomitant]
  9. ZOCOR (SIMVASTATIN) 02/19/2011 TO UNK [Concomitant]
  10. ASPIRIN (ACETYLSALICYLIC ACID) 02/19/2011 TO UNK [Concomitant]
  11. EXJADE [Suspect]
     Indication: LYMPHATIC SYSTEM NEOPLASM
     Dosage: 2000 MG, DAILY, ORAL 1500 MG, DAILY, ORAL
     Route: 048
     Dates: start: 20080102
  12. EXJADE [Suspect]
     Indication: HAEMATOPOIETIC NEOPLASM
     Dosage: 2000 MG, DAILY, ORAL 1500 MG, DAILY, ORAL
     Route: 048
     Dates: start: 20080102
  13. EXJADE [Suspect]
     Indication: LYMPHATIC SYSTEM NEOPLASM
     Dosage: 2000 MG, DAILY, ORAL 1500 MG, DAILY, ORAL
     Route: 048
     Dates: end: 20110906
  14. EXJADE [Suspect]
     Indication: HAEMATOPOIETIC NEOPLASM
     Dosage: 2000 MG, DAILY, ORAL 1500 MG, DAILY, ORAL
     Route: 048
     Dates: end: 20110906
  15. CLARITIN (LORATADINE) 02/19/2011 TO UNK [Concomitant]
  16. TRAZODONE (TRAZODONE) 02/19/2011 TO UNK [Concomitant]
  17. FLOMOX (CEFCAPENE PIVOXIL HYDROCHLORIDE) 02/19/2011 TO UNK [Concomitant]
  18. COUMADIN (WARFARIN SODIUM) 02/19/2011 TO UNK [Concomitant]
  19. ANDROGEL [Concomitant]

REACTIONS (3)
  - RENAL FAILURE ACUTE [None]
  - LIVER FUNCTION TEST ABNORMAL [None]
  - BLOOD CREATININE INCREASED [None]
